FAERS Safety Report 9096664 (Version 1)
Quarter: 2013Q1

REPORT INFORMATION
  Report Type: Spontaneous
  Country: US (occurrence: None)
  Receive Date: 20130124
  Receipt Date: 20130124
  Transmission Date: 20140127
  Serious: Yes (Other)
  Sender: FDA-Public Use
  Company Number: JPI-P-029110

PATIENT
  Age: 42 Year
  Sex: Female

DRUGS (5)
  1. XYREM (500 MILLIGRAM/MILLILITERS, SOLUTION) (SODIUM OXYBATE) [Suspect]
     Indication: SLEEP DISORDER
     Dosage: 9 GM (4.5 GM, 2 IN 1 D), ORAL
     Route: 048
     Dates: start: 20050826, end: 201212
  2. XYREM (500 MILLIGRAM/MILLILITERS, SOLUTION) (SODIUM OXYBATE) [Suspect]
     Indication: INSOMNIA
     Dosage: 9 GM (4.5 GM, 2 IN 1 D), ORAL
     Route: 048
     Dates: start: 20050826, end: 201212
  3. OXYCONTIN [Suspect]
     Indication: FIBROMYALGIA
     Dates: start: 201202
  4. ZOLPIDEM TARTRATE [Concomitant]
  5. TEMAZEPAM [Concomitant]

REACTIONS (5)
  - Drug detoxification [None]
  - Stress [None]
  - Insomnia [None]
  - Pain [None]
  - Disease recurrence [None]
